FAERS Safety Report 19775879 (Version 1)
Quarter: 2021Q3

REPORT INFORMATION
  Report Type: Spontaneous
  Country: DE (occurrence: DE)
  Receive Date: 20210901
  Receipt Date: 20210901
  Transmission Date: 20211014
  Serious: Yes (Life-Threatening, Hospitalization)
  Sender: FDA-Public Use
  Company Number: NVSC2021DE196374

PATIENT
  Age: 57 Year
  Sex: Female

DRUGS (18)
  1. FENISTIL [Concomitant]
     Active Substance: DIMETHINDENE
     Indication: PROPHYLACTIC CHEMOTHERAPY
     Dosage: 4 MG, QD
     Route: 042
     Dates: start: 20201119
  2. CARBOPLATIN. [Suspect]
     Active Substance: CARBOPLATIN
     Dosage: 500 MG, Q3W
     Route: 042
     Dates: start: 20210126, end: 20210126
  3. BEVACIZUMAB. [Concomitant]
     Active Substance: BEVACIZUMAB
     Dosage: 975 MG, Q3W
     Route: 042
     Dates: start: 20210126, end: 20210126
  4. CARBOPLATIN. [Suspect]
     Active Substance: CARBOPLATIN
     Dosage: 530 MG, Q3W
     Route: 042
     Dates: start: 20201210, end: 20201210
  5. CARBOPLATIN. [Suspect]
     Active Substance: CARBOPLATIN
     Dosage: 480 MG, Q3W
     Route: 042
     Dates: start: 20210104, end: 20210104
  6. PACLITAXEL. [Suspect]
     Active Substance: PACLITAXEL
     Indication: OVARIAN CANCER
     Dosage: 301 MG, Q3W
     Route: 042
     Dates: start: 20201119, end: 20201119
  7. PACLITAXEL. [Suspect]
     Active Substance: PACLITAXEL
     Dosage: 301 MG, Q3W
     Route: 042
     Dates: start: 20210104, end: 20210104
  8. DEXAMETHASON [Concomitant]
     Active Substance: DEXAMETHASONE
     Indication: PROPHYLACTIC CHEMOTHERAPY
     Dosage: 8 MG, QD
     Route: 048
     Dates: start: 20201119
  9. JODTHYROX [Concomitant]
     Active Substance: LEVOTHYROXINE SODIUM\POTASSIUM IODIDE
     Indication: HYPOTHYROIDISM
     Dosage: 100 UG, QD
     Route: 048
     Dates: start: 1990
  10. BEVACIZUMAB. [Concomitant]
     Active Substance: BEVACIZUMAB
     Indication: OVARIAN CANCER
     Dosage: 990 MG, Q3W
     Route: 042
     Dates: start: 20201210, end: 20201210
  11. GRANISETRON [Concomitant]
     Active Substance: GRANISETRON
     Indication: PROPHYLACTIC CHEMOTHERAPY
     Dosage: 2 MG, QD
     Route: 048
     Dates: start: 20201119
  12. PACLITAXEL. [Suspect]
     Active Substance: PACLITAXEL
     Dosage: 301 MG, Q3W
     Route: 042
     Dates: start: 20201210, end: 20201210
  13. OLAPARIB. [Suspect]
     Active Substance: OLAPARIB
     Indication: OVARIAN CANCER
     Dosage: UNK
     Route: 048
  14. CARBOPLATIN. [Suspect]
     Active Substance: CARBOPLATIN
     Indication: OVARIAN CANCER
     Dosage: 550 MG, Q3W
     Route: 042
     Dates: start: 20201119, end: 20201119
  15. PACLITAXEL. [Suspect]
     Active Substance: PACLITAXEL
     Dosage: 300 MG, Q3W
     Route: 042
     Dates: start: 20210126, end: 20210126
  16. DURVALUMAB. [Suspect]
     Active Substance: DURVALUMAB
     Indication: OVARIAN CANCER
     Dosage: 22 ML, Q3W
     Route: 042
     Dates: start: 20201210, end: 20201210
  17. DURVALUMAB. [Suspect]
     Active Substance: DURVALUMAB
     Dosage: 22 ML, Q3W
     Route: 042
     Dates: start: 20210104, end: 20210104
  18. BEVACIZUMAB. [Concomitant]
     Active Substance: BEVACIZUMAB
     Dosage: 990 MG, Q3W
     Route: 042
     Dates: start: 20210104, end: 20210104

REACTIONS (1)
  - Alanine aminotransferase increased [Not Recovered/Not Resolved]

NARRATIVE: CASE EVENT DATE: 20210202
